FAERS Safety Report 22525107 (Version 1)
Quarter: 2023Q2

REPORT INFORMATION
  Report Type: Spontaneous
  Country: US (occurrence: None)
  Receive Date: 20230605
  Receipt Date: 20230605
  Transmission Date: 20230722
  Serious: Yes (Life-Threatening, Hospitalization, Disabling)
  Sender: FDA-Public Use
  Company Number: None

PATIENT
  Age: 38 Year
  Sex: Male
  Weight: 77.85 kg

DRUGS (1)
  1. GEODON [Suspect]
     Active Substance: ZIPRASIDONE HYDROCHLORIDE\ZIPRASIDONE MESYLATE
     Indication: Brain injury
     Dosage: FREQUENCY : DAILY;?
     Route: 048
     Dates: start: 20141110, end: 20150228

REACTIONS (2)
  - Electric shock sensation [None]
  - Hypersensitivity [None]

NARRATIVE: CASE EVENT DATE: 20141010
